FAERS Safety Report 9907595 (Version 3)
Quarter: 2014Q2

REPORT INFORMATION
  Report Type: Spontaneous
  Country: JP (occurrence: JP)
  Receive Date: 20140218
  Receipt Date: 20140402
  Transmission Date: 20141212
  Serious: Yes (Life-Threatening)
  Sender: FDA-Public Use
  Company Number: JP-ROCHE-1337275

PATIENT
  Age: 42 Year
  Sex: Male
  Weight: 56 kg

DRUGS (8)
  1. CELLCEPT [Suspect]
     Indication: PROPHYLAXIS AGAINST TRANSPLANT REJECTION
     Route: 048
     Dates: start: 20111023, end: 20120531
  2. CELLCEPT [Suspect]
     Indication: PROPHYLAXIS AGAINST TRANSPLANT REJECTION
     Dosage: DOSAGE IS UNCERTAIN.
     Route: 048
     Dates: start: 20120608
  3. PROTECADIN [Concomitant]
     Route: 048
     Dates: start: 20111023
  4. MUCOSTA [Concomitant]
     Route: 048
     Dates: start: 20111023
  5. TACROLIMUS HYDRATE [Concomitant]
     Dosage: DRUG REPORTED AS : GRACEPTOR
     Route: 048
     Dates: start: 20111023, end: 20120531
  6. TACROLIMUS HYDRATE [Concomitant]
     Route: 048
     Dates: start: 20120606
  7. MEDROL [Concomitant]
     Indication: PROPHYLAXIS
     Route: 048
     Dates: start: 20111124, end: 20120531
  8. TENORMIN [Concomitant]
     Route: 048
     Dates: start: 20111023

REACTIONS (5)
  - Urosepsis [Recovered/Resolved]
  - Depressed level of consciousness [Recovered/Resolved]
  - Disseminated intravascular coagulation [Recovered/Resolved]
  - Acute respiratory distress syndrome [Recovered/Resolved]
  - Ureteric stenosis [Recovered/Resolved]
